FAERS Safety Report 7917732-0 (Version None)
Quarter: 2011Q4

REPORT INFORMATION
  Report Type: 
  Country: None (occurrence: None)
  Receive Date: 20111116
  Receipt Date: 20111110
  Transmission Date: 20120403
  Serious: Yes (Hospitalization)
  Sender: FDA-Public Use
  Company Number: US-ABBOTT-11P-163-0873401-00

PATIENT
  Sex: Male
  Weight: 62.198 kg

DRUGS (3)
  1. UNKNOWN ACNE MEDICINE [Concomitant]
     Indication: ACNE
  2. ASACOL HC [Concomitant]
     Indication: CROHN'S DISEASE
  3. HUMIRA [Suspect]
     Indication: CROHN'S DISEASE
     Dates: start: 20110201

REACTIONS (4)
  - CHEST PAIN [None]
  - DEHYDRATION [None]
  - FATIGUE [None]
  - OFF LABEL USE [None]
